FAERS Safety Report 16705835 (Version 1)
Quarter: 2019Q4

REPORT INFORMATION
  Report Type: Spontaneous
  Country: US (occurrence: US)
  Receive Date: 20190814
  Receipt Date: 20190814
  Transmission Date: 20200122
  Serious: No
  Sender: FDA-Public Use
  Company Number: None

PATIENT
  Age: 69 Year
  Sex: Female

DRUGS (2)
  1. SIMBRINZA [Suspect]
     Active Substance: BRIMONIDINE TARTRATE\BRINZOLAMIDE
  2. TIMOLOL. [Suspect]
     Active Substance: TIMOLOL

REACTIONS (1)
  - Treatment failure [None]

NARRATIVE: CASE EVENT DATE: 20190814
